FAERS Safety Report 16581457 (Version 1)
Quarter: 2019Q3

REPORT INFORMATION
  Report Type: Spontaneous
  Country: CN (occurrence: CN)
  Receive Date: 20190716
  Receipt Date: 20190716
  Transmission Date: 20191004
  Serious: Yes (Death)
  Sender: FDA-Public Use
  Company Number: CN-ALLERGAN-1928670US

PATIENT
  Sex: Male

DRUGS (2)
  1. DYDROGESTERONE [Suspect]
     Active Substance: DYDROGESTERONE
     Indication: EXPOSURE DURING PREGNANCY
     Route: 065
  2. PROGESTERONE UNK [Suspect]
     Active Substance: PROGESTERONE
     Indication: EXPOSURE DURING PREGNANCY
     Route: 065

REACTIONS (2)
  - Premature baby [Unknown]
  - Gaucher^s disease [Fatal]
